FAERS Safety Report 9852504 (Version 2)
Quarter: 2014Q1

REPORT INFORMATION
  Report Type: Spontaneous
  Country: US (occurrence: US)
  Receive Date: 20140129
  Receipt Date: 20140305
  Transmission Date: 20141002
  Serious: Yes (Other)
  Sender: FDA-Public Use
  Company Number: US-PFIZER INC-2014023679

PATIENT
  Age: 84 Year
  Sex: Female
  Weight: 43.99 kg

DRUGS (3)
  1. DETROL LA [Suspect]
     Indication: HYPERTONIC BLADDER
     Dosage: 4 MG, 1X/DAY
     Route: 048
     Dates: start: 201302, end: 201310
  2. DETROL LA [Suspect]
     Dosage: UNK
  3. EVISTA [Concomitant]
     Dosage: UNK

REACTIONS (4)
  - Macular degeneration [Recovering/Resolving]
  - Vision blurred [Recovering/Resolving]
  - Lacrimation increased [Recovering/Resolving]
  - Dry eye [Recovering/Resolving]
